FAERS Safety Report 6822278-7 (Version None)
Quarter: 2010Q3

REPORT INFORMATION
  Report Type: 
  Country: None (occurrence: None)
  Receive Date: 20100708
  Receipt Date: 20100625
  Transmission Date: 20110219
  Serious: No
  Sender: FDA-Public Use
  Company Number: US-ELI_LILLY_AND_COMPANY-US201002000259

PATIENT
  Sex: Female

DRUGS (7)
  1. FORTEO [Suspect]
     Indication: OSTEOPOROSIS
     Dosage: 20 UG, DAILY (1/D)
     Dates: start: 20090715
  2. LYRICA [Concomitant]
  3. GABAPENTIN [Concomitant]
  4. NEXIUM [Concomitant]
  5. POTASSIUM CHLORIDE [Concomitant]
  6. FIBERCON [Concomitant]
  7. NAPROXEN [Concomitant]

REACTIONS (1)
  - NO ADVERSE EVENT [None]
